FAERS Safety Report 4457397-6 (Version None)
Quarter: 2004Q3

REPORT INFORMATION
  Report Type: 
  Country: None (occurrence: None)
  Receive Date: 20040921
  Receipt Date: 20040909
  Transmission Date: 20050211
  Serious: Yes (Other)
  Sender: FDA-Public Use
  Company Number: B0342138A

PATIENT
  Age: 55 Year
  Sex: Female

DRUGS (7)
  1. AUGMENTIN [Suspect]
  2. CONJUGATED ESTROGENS [Suspect]
  3. CO-DYDRAMOL (CO-DYDRAMOL) [Suspect]
  4. FLUOXETINE [Suspect]
  5. METHOTREXATE [Concomitant]
  6. ROFECOXIB [Concomitant]
  7. ADALIMUMAB (ADALIMUMAB) [Concomitant]

REACTIONS (1)
  - EYE HAEMORRHAGE [None]
